FAERS Safety Report 9307465 (Version 2)
Quarter: 2013Q2

REPORT INFORMATION
  Report Type: Spontaneous
  Country: US (occurrence: US)
  Receive Date: 20130524
  Receipt Date: 20130528
  Transmission Date: 20140414
  Serious: No
  Sender: FDA-Public Use
  Company Number: US-009507513-1305USA012673

PATIENT
  Sex: Female

DRUGS (1)
  1. ZIOPTAN [Suspect]
     Dosage: 1 DROP IN EACH EYE AT BED TIME
     Route: 047

REACTIONS (2)
  - Incorrect storage of drug [Unknown]
  - No adverse event [Unknown]
